FAERS Safety Report 7538466-0 (Version None)
Quarter: 2011Q2

REPORT INFORMATION
  Report Type: 
  Country: None (occurrence: None)
  Receive Date: 20110609
  Receipt Date: 20110603
  Transmission Date: 20111010
  Serious: Yes (Hospitalization)
  Sender: FDA-Public Use
  Company Number: US-GILEAD-2011-0037783

PATIENT
  Sex: Female

DRUGS (16)
  1. LETAIRIS [Suspect]
     Indication: PULMONARY HYPERTENSION
     Route: 048
     Dates: start: 20101006
  2. ADVAIR DISKUS 100/50 [Concomitant]
  3. PREDNISONE [Concomitant]
  4. LETAIRIS [Suspect]
     Indication: HYPERTENSION
  5. LETAIRIS [Suspect]
     Indication: HYPERLIPIDAEMIA
  6. LETAIRIS [Suspect]
     Indication: INTERSTITIAL LUNG DISEASE
  7. LASIX [Concomitant]
  8. ATROVENT [Concomitant]
  9. SINGULAIR [Concomitant]
  10. OXYGEN [Concomitant]
  11. LETAIRIS [Suspect]
     Indication: TYPE 2 DIABETES MELLITUS
  12. BROVANA [Concomitant]
  13. FISH OIL [Concomitant]
  14. METFORMIN HYDROCHLORIDE [Concomitant]
  15. FLAXSEED OIL [Concomitant]
  16. POTASSIUM CHLORIDE [Concomitant]

REACTIONS (1)
  - PNEUMONIA [None]
